FAERS Safety Report 22140110 (Version 1)
Quarter: 2023Q1

REPORT INFORMATION
  Report Type: Spontaneous
  Country: US (occurrence: US)
  Receive Date: 20230327
  Receipt Date: 20230327
  Transmission Date: 20230418
  Serious: No
  Sender: FDA-Public Use
  Company Number: US-JNJFOC-20230362099

PATIENT
  Sex: Male

DRUGS (2)
  1. STELARA [Suspect]
     Active Substance: USTEKINUMAB
     Indication: Inflammatory bowel disease
     Route: 040
  2. STELARA [Suspect]
     Active Substance: USTEKINUMAB
     Indication: Eczema

REACTIONS (1)
  - Therapeutic response unexpected [Unknown]
